FAERS Safety Report 8936807 (Version 1)
Quarter: 2012Q4

REPORT INFORMATION
  Report Type: 
  Country: GB (occurrence: GB)
  Receive Date: 20121130
  Receipt Date: 20121130
  Transmission Date: 20130627
  Serious: Yes (Hospitalization)
  Sender: FDA-Public Use
  Company Number: GB-BAUSCH-BL-2012-001805

PATIENT
  Sex: Female

DRUGS (7)
  1. PREDNISOLONE [Suspect]
     Indication: MYALGIA
     Route: 048
     Dates: start: 20110816, end: 20120521
  2. NO DRUG NAME [Concomitant]
     Route: 048
     Dates: start: 20090702
  3. NO DRUG NAME [Concomitant]
     Route: 048
     Dates: start: 20110702
  4. NO DRUG NAME [Concomitant]
     Dates: start: 20110512
  5. NO DRUG NAME [Concomitant]
     Route: 048
     Dates: start: 20110919
  6. NO DRUG NAME [Concomitant]
     Route: 048
     Dates: start: 20090416
  7. NO DRUG NAME [Concomitant]
     Route: 048
     Dates: start: 20120607

REACTIONS (1)
  - White blood cell count abnormal [Recovering/Resolving]
